FAERS Safety Report 10099066 (Version 2)
Quarter: 2014Q2

REPORT INFORMATION
  Report Type: Spontaneous
  Country: US (occurrence: US)
  Receive Date: 20140423
  Receipt Date: 20140423
  Transmission Date: 20141212
  Serious: No
  Sender: FDA-Public Use
  Company Number: US-GILEAD-2012-0066444

PATIENT
  Sex: Female

DRUGS (5)
  1. LETAIRIS [Suspect]
     Indication: COR PULMONALE CHRONIC
     Dosage: 5 MG, QD
     Route: 048
     Dates: start: 20121002
  2. LETAIRIS [Suspect]
     Indication: COR PULMONALE CHRONIC
  3. TYVASO [Concomitant]
  4. REVATIO [Concomitant]
  5. TYVASO [Suspect]

REACTIONS (6)
  - Cough [Unknown]
  - Sluggishness [Unknown]
  - Insomnia [Unknown]
  - Fatigue [Unknown]
  - Nausea [Unknown]
  - Abdominal pain [Unknown]
